FAERS Safety Report 9249603 (Version 1)
Quarter: 2013Q2

REPORT INFORMATION
  Report Type: Spontaneous
  Country: US (occurrence: US)
  Receive Date: 20130423
  Receipt Date: 20130423
  Transmission Date: 20140414
  Serious: Yes (Hospitalization, Other)
  Sender: FDA-Public Use
  Company Number: US-BRISTOL-MYERS SQUIBB COMPANY-17400664

PATIENT
  Sex: Male

DRUGS (1)
  1. YERVOY [Suspect]
     Indication: MALIGNANT MELANOMA

REACTIONS (1)
  - Malignant neoplasm progression [Unknown]
